FAERS Safety Report 6373724-7 (Version None)
Quarter: 2009Q3

REPORT INFORMATION
  Report Type: 
  Country: None (occurrence: None)
  Receive Date: 20090924
  Receipt Date: 20090506
  Transmission Date: 20100115
  Serious: No
  Sender: FDA-Public Use
  Company Number: US-ASTRAZENECA-2009UW11549

PATIENT
  Age: 70 Year
  Sex: Male
  Weight: 74.8 kg

DRUGS (5)
  1. SEROQUEL [Suspect]
     Indication: BIPOLAR DISORDER
     Route: 048
     Dates: start: 20090506
  2. SEROQUEL [Suspect]
     Route: 048
     Dates: start: 20090506
  3. PLAVIX [Concomitant]
  4. CLOZAPAM [Concomitant]
  5. ASPIRIN [Concomitant]

REACTIONS (2)
  - ABASIA [None]
  - BALANCE DISORDER [None]
